FAERS Safety Report 7240770-0 (Version None)
Quarter: 2011Q1

REPORT INFORMATION
  Report Type: 
  Country: None (occurrence: None)
  Receive Date: 20110124
  Receipt Date: 20110118
  Transmission Date: 20110831
  Serious: Yes (Death)
  Sender: FDA-Public Use
  Company Number: AU-BRACCO-000103

PATIENT
  Sex: Male
  Weight: 85 kg

DRUGS (2)
  1. ISOVUE-128 [Suspect]
     Indication: GASTROOESOPHAGEAL REFLUX DISEASE
     Route: 042
     Dates: start: 20110110, end: 20110110
  2. ISOVUE-128 [Suspect]
     Indication: COMPUTERISED TOMOGRAM
     Route: 042
     Dates: start: 20110110, end: 20110110

REACTIONS (1)
  - ANAPHYLACTIC SHOCK [None]
